FAERS Safety Report 7825413-7 (Version None)
Quarter: 2011Q4

REPORT INFORMATION
  Report Type: 
  Country: None (occurrence: None)
  Receive Date: 20111019
  Receipt Date: 20111011
  Transmission Date: 20120403
  Serious: Yes (Other)
  Sender: FDA-Public Use
  Company Number: US-JNJFOC-20110911353

PATIENT
  Sex: Male
  Weight: 89.36 kg

DRUGS (2)
  1. NIZORAL [Suspect]
     Indication: PROSTATE CANCER
     Route: 048
     Dates: start: 20101011, end: 20110211
  2. TAXOTERE [Suspect]
     Indication: PRODUCT USED FOR UNKNOWN INDICATION
     Route: 065
     Dates: start: 20110216, end: 20110801

REACTIONS (3)
  - INAPPROPRIATE SCHEDULE OF DRUG ADMINISTRATION [None]
  - DRUG INEFFECTIVE FOR UNAPPROVED INDICATION [None]
  - HEPATIC NEOPLASM MALIGNANT [None]
